FAERS Safety Report 20186504 (Version 2)
Quarter: 2021Q4

REPORT INFORMATION
  Report Type: Spontaneous
  Country: JP (occurrence: JP)
  Receive Date: 20211215
  Receipt Date: 20211216
  Transmission Date: 20220303
  Serious: Yes (Other)
  Sender: FDA-Public Use
  Company Number: JP-NOVARTISPH-NVSJ2020JP008152

PATIENT
  Age: 71 Year
  Sex: Female

DRUGS (1)
  1. BEOVU [Suspect]
     Active Substance: BROLUCIZUMAB-DBLL
     Indication: Age-related macular degeneration
     Dosage: 0.05 MG
     Route: 031
     Dates: start: 20200731

REACTIONS (5)
  - Uveitis [Recovering/Resolving]
  - Vitreous opacities [Recovered/Resolved]
  - Visual acuity reduced [Recovering/Resolving]
  - Vitreous floaters [Unknown]
  - Choroidal neovascularisation [Unknown]

NARRATIVE: CASE EVENT DATE: 20200819
